FAERS Safety Report 8533443 (Version 3)
Quarter: 2012Q4

REPORT INFORMATION
  Report Type: 
  Country: US (occurrence: US)
  Receive Date: 20120427
  Receipt Date: 20121015
  Transmission Date: 20130627
  Serious: Yes (Other)
  Sender: FDA-Public Use
  Company Number: US-ASTRAZENECA-2012SE26347

PATIENT
  Age: 59 Year
  Sex: Male

DRUGS (5)
  1. TOPROL XL [Suspect]
     Route: 048
  2. CRESTOR [Suspect]
     Route: 048
  3. NEXIUM [Interacting]
     Route: 048
  4. LAMICTAL [Interacting]
     Route: 065
  5. DILANTIN [Interacting]
     Route: 065

REACTIONS (3)
  - Drug interaction [Unknown]
  - Convulsion [Unknown]
  - Headache [Unknown]
